FAERS Safety Report 4840776-2 (Version None)
Quarter: 2005Q4

REPORT INFORMATION
  Report Type: 
  Country: None (occurrence: None)
  Receive Date: 20051130
  Receipt Date: 20051122
  Transmission Date: 20060501
  Serious: Yes (Hospitalization)
  Sender: FDA-Public Use
  Company Number: ZA-AVENTIS-200520287GDDC

PATIENT
  Age: 45 Year
  Sex: Female

DRUGS (4)
  1. TAXOTERE [Suspect]
     Indication: BREAST CANCER METASTATIC
     Route: 042
     Dates: start: 20050223, end: 20050223
  2. TAXOTERE [Suspect]
  3. ZAMANON [Suspect]
     Indication: PROPHYLAXIS OF NAUSEA AND VOMITING
     Route: 042
     Dates: start: 20050223, end: 20050223
  4. DECASONE [Suspect]
     Indication: PROPHYLAXIS OF NAUSEA AND VOMITING
     Route: 042
     Dates: start: 20050223, end: 20050223

REACTIONS (4)
  - NAUSEA [None]
  - NEUTROPENIA [None]
  - PHARYNGITIS [None]
  - VOMITING [None]
